FAERS Safety Report 5451126-5 (Version None)
Quarter: 2007Q3

REPORT INFORMATION
  Report Type: 
  Country: None (occurrence: None)
  Receive Date: 20070913
  Receipt Date: 20070905
  Transmission Date: 20080115
  Serious: Yes (Other)
  Sender: FDA-Public Use
  Company Number: FR-NOVOPROD-266022

PATIENT
  Sex: Male
  Weight: 125 kg

DRUGS (8)
  1. INSULATARD FLEXPEN [Suspect]
     Indication: DIABETES MELLITUS
     Dosage: 30 IU, QD (AT NIGHT)
     Dates: start: 20070418, end: 20070423
  2. NOVONORM [Concomitant]
     Indication: DIABETES MELLITUS
     Dosage: 6 MG, QD
     Route: 048
     Dates: start: 20070703, end: 20070723
  3. METFORMIN HCL [Concomitant]
     Dosage: 3000 MG, QD
     Route: 048
  4. GLYBURIDE [Concomitant]
     Indication: DIABETES MELLITUS
     Dosage: 15 MG, QD
     Route: 048
     Dates: start: 19900101, end: 20070703
  5. GLUCOPHAGE [Concomitant]
  6. ACARBOSE [Concomitant]
     Indication: DIABETES MELLITUS
     Dosage: 300 MG, QD
     Route: 048
     Dates: start: 19900101, end: 20070703
  7. TANATRIL [Concomitant]
     Indication: HYPERTENSION
     Dosage: 10 MG, QD
     Route: 048
     Dates: start: 19900101
  8. SOPROL [Concomitant]
     Indication: HYPERTENSION
     Dosage: 10 MG, QD
     Route: 048
     Dates: start: 19900101

REACTIONS (1)
  - RESPIRATORY DISORDER [None]
